FAERS Safety Report 22268671 (Version 1)
Quarter: 2023Q2

REPORT INFORMATION
  Report Type: Spontaneous
  Country: IT (occurrence: IT)
  Receive Date: 20230501
  Receipt Date: 20230501
  Transmission Date: 20230721
  Serious: Yes (Other)
  Sender: FDA-Public Use
  Company Number: IT-PFIZER INC-202300118075

PATIENT
  Age: 76 Year
  Sex: Female

DRUGS (2)
  1. CISPLATIN [Suspect]
     Active Substance: CISPLATIN
     Indication: Cholangiocarcinoma
     Dates: start: 202007
  2. DOXORUBICIN [Suspect]
     Active Substance: DOXORUBICIN
     Indication: Cholangiocarcinoma
     Dates: start: 202007

REACTIONS (6)
  - Off label use [Unknown]
  - Nausea [Unknown]
  - Cancer fatigue [Recovering/Resolving]
  - Weight decreased [Recovered/Resolved]
  - Vomiting [Unknown]
  - Chronic kidney disease [Recovered/Resolved]

NARRATIVE: CASE EVENT DATE: 20200101
